FAERS Safety Report 7304836-9 (Version None)
Quarter: 2011Q1

REPORT INFORMATION
  Report Type: 
  Country: None (occurrence: None)
  Receive Date: 20110222
  Receipt Date: 20110209
  Transmission Date: 20110831
  Serious: Yes (Hospitalization, Other)
  Sender: FDA-Public Use
  Company Number: ES-ELI_LILLY_AND_COMPANY-ES201102002525

PATIENT
  Sex: Female
  Weight: 56 kg

DRUGS (8)
  1. FORTEO [Suspect]
     Indication: OSTEOPOROSIS
     Dosage: 20 UG, DAILY (1/D)
     Route: 058
     Dates: start: 20101228, end: 20110206
  2. ASTUDAL [Concomitant]
     Indication: HYPERTENSION
     Dosage: 5 MG, DAILY (1/D)
     Route: 048
  3. SEGURIL [Concomitant]
     Indication: DIURETIC THERAPY
     Dosage: 40 MG, DAILY (1/D)
     Route: 048
  4. SEROQUEL [Concomitant]
     Indication: ANXIETY
     Dosage: 0.5 D/F, DAILY (1/D)
     Route: 048
  5. DACORTIN [Concomitant]
     Indication: PAIN
     Dosage: 0.5 D/F, DAILY (1/D)
     Route: 048
  6. EMCONCOR [Concomitant]
     Indication: HYPERTENSION
     Dosage: 2.5 MG, DAILY (1/D)
     Route: 048
  7. SERETIDE [Concomitant]
     Indication: BRONCHITIS
     Dosage: 25 MG, DAILY (1/D)
     Route: 048
  8. OMEPRAZOLE [Concomitant]
     Indication: GASTRIC DISORDER
     Dosage: 20 MG, DAILY (1/D)
     Route: 048

REACTIONS (2)
  - PYELONEPHRITIS [None]
  - RENAL FAILURE [None]
